FAERS Safety Report 24886304 (Version 1)
Quarter: 2025Q1

REPORT INFORMATION
  Report Type: Spontaneous
  Country: CN (occurrence: CN)
  Receive Date: 20250126
  Receipt Date: 20250126
  Transmission Date: 20250409
  Serious: Yes (Hospitalization, Other)
  Sender: ALEXION PHARMACEUTICALS
  Company Number: CN-ASTRAZENECA-202501CHN020685CN

PATIENT
  Age: 51 Year
  Weight: 71 kg

DRUGS (3)
  1. DAPAGLIFLOZIN [Suspect]
     Active Substance: DAPAGLIFLOZIN
     Indication: Hypoglycaemia
     Dosage: 10 MILLIGRAM, QD
  2. CANAGLIFLOZIN [Concomitant]
     Active Substance: CANAGLIFLOZIN
     Indication: Hypoglycaemia
     Dosage: 0.1 GRAM, QD
  3. GLUCOBAY [Concomitant]
     Active Substance: ACARBOSE
     Indication: Hypoglycaemia
     Dosage: 50 MILLIGRAM, TID

REACTIONS (14)
  - Ketoacidosis [Recovering/Resolving]
  - Abdominal pain [Recovering/Resolving]
  - Dyspnoea [Recovering/Resolving]
  - Nausea [Recovering/Resolving]
  - Pulmonary mass [Unknown]
  - Pancreatitis acute [Unknown]
  - Oliguria [Unknown]
  - Pleural effusion [Unknown]
  - Cholelithiasis [Unknown]
  - Multiple organ dysfunction syndrome [Unknown]
  - Cholecystitis acute [Unknown]
  - Acidosis [Unknown]
  - Electrolyte imbalance [Unknown]
  - Renal failure [Unknown]
